FAERS Safety Report 22228517 (Version 1)
Quarter: 2023Q2

REPORT INFORMATION
  Report Type: Spontaneous
  Country: US (occurrence: None)
  Receive Date: 20230418
  Receipt Date: 20230418
  Transmission Date: 20230721
  Serious: No
  Sender: FDA-Public Use
  Company Number: None

PATIENT
  Age: 38 Year
  Sex: Female
  Weight: 58.5 kg

DRUGS (13)
  1. IOFLUPANE I-123 [Suspect]
     Active Substance: IOFLUPANE I-123
     Indication: Scan brain
     Dosage: QUANTITY: 1 INJECTIONS
     Route: 042
     Dates: start: 20230418, end: 20230418
  2. SERTRALINE [Concomitant]
     Active Substance: SERTRALINE HYDROCHLORIDE
  3. MEMANTINE [Concomitant]
     Active Substance: MEMANTINE
  4. SINEMET [Concomitant]
     Active Substance: CARBIDOPA\LEVODOPA
  5. XANAX [Concomitant]
     Active Substance: ALPRAZOLAM
  6. PROPRANOLOL [Concomitant]
     Active Substance: PROPRANOLOL HYDROCHLORIDE
  7. NORETHINDRONE [Concomitant]
     Active Substance: NORETHINDRONE
  8. Vitamins B12 [Concomitant]
  9. VITAMIN C [Concomitant]
     Active Substance: ASCORBIC ACID
  10. VITAMIN D [Concomitant]
     Active Substance: VITAMIN D NOS
  11. IRON [Concomitant]
     Active Substance: IRON
  12. MAGNESIUM [Concomitant]
     Active Substance: MAGNESIUM
  13. POTASSIUM [Concomitant]
     Active Substance: POTASSIUM

REACTIONS (3)
  - Nausea [None]
  - Vomiting [None]
  - Infusion related reaction [None]

NARRATIVE: CASE EVENT DATE: 20230418
